FAERS Safety Report 5839053-2 (Version None)
Quarter: 2008Q3

REPORT INFORMATION
  Report Type: 
  Country: None (occurrence: None)
  Receive Date: 20080808
  Receipt Date: 20080731
  Transmission Date: 20090109
  Serious: Yes (Hospitalization)
  Sender: FDA-Public Use
  Company Number: US-GENENTECH-263197

PATIENT
  Sex: Female

DRUGS (8)
  1. NO STUDY DRUG ADMINISTERED [Suspect]
     Indication: OVARIAN CANCER
     Dosage: UNK, UNK
  2. CISPLATIN [Concomitant]
     Indication: OVARIAN CANCER
     Dosage: UNK
     Route: 033
     Dates: start: 20080613
  3. TAXOL [Concomitant]
     Indication: OVARIAN CANCER
     Dosage: UNK
     Route: 042
     Dates: start: 20080612
  4. APREPITANT [Concomitant]
     Indication: DRUG USE FOR UNKNOWN INDICATION
     Dosage: 80 MG, UNK
     Dates: start: 20080612
  5. DEXAMETHASONE [Concomitant]
     Indication: DRUG USE FOR UNKNOWN INDICATION
     Dates: start: 20080612
  6. ESOMEPRAZOLE [Concomitant]
     Indication: DRUG USE FOR UNKNOWN INDICATION
     Dosage: 20 MG, UNK
     Dates: start: 20080605
  7. FEXOFENADINE [Concomitant]
     Indication: DRUG USE FOR UNKNOWN INDICATION
     Dosage: 1 TABLET, UNK
     Dates: start: 20080605
  8. ONDANSETRON [Concomitant]
     Indication: DRUG USE FOR UNKNOWN INDICATION
     Dosage: 8 MG, UNK
     Dates: start: 20080612

REACTIONS (2)
  - FRACTURE [None]
  - SYNCOPE VASOVAGAL [None]
